FAERS Safety Report 8912329 (Version 1)
Quarter: 2012Q4

REPORT INFORMATION
  Report Type: 
  Country: US (occurrence: US)
  Receive Date: 20121116
  Receipt Date: 20121116
  Transmission Date: 20130627
  Serious: No
  Sender: FDA-Public Use
  Company Number: US-BAYER-2012-119528

PATIENT
  Age: 32 Year
  Sex: Male

DRUGS (1)
  1. MAGNEVIST [Suspect]
     Indication: MRI
     Dosage: 15 ml, ONCE
     Route: 042
     Dates: start: 20121114, end: 20121114

REACTIONS (1)
  - Vomiting [Recovered/Resolved]
